FAERS Safety Report 20448904 (Version 1)
Quarter: 2022Q1

REPORT INFORMATION
  Report Type: Spontaneous
  Country: US (occurrence: US)
  Receive Date: 20220209
  Receipt Date: 20220209
  Transmission Date: 20220424
  Serious: No
  Sender: FDA-Public Use
  Company Number: US-SA-SAC20220204000318

PATIENT
  Age: 52 Year
  Sex: Female

DRUGS (1)
  1. AUBAGIO [Suspect]
     Active Substance: TERIFLUNOMIDE
     Indication: Multiple sclerosis
     Dosage: 14 MG, QD
     Route: 048
     Dates: start: 20190829

REACTIONS (8)
  - Balance disorder [Unknown]
  - Depression [Unknown]
  - Joint injury [Unknown]
  - Bladder disorder [Unknown]
  - Cognitive disorder [Unknown]
  - Diarrhoea [Unknown]
  - Unevaluable event [Unknown]
  - Product dose omission issue [Unknown]
